FAERS Safety Report 8761824 (Version 3)
Quarter: 2013Q1

REPORT INFORMATION
  Report Type: Spontaneous
  Country: IT (occurrence: None)
  Receive Date: 20120823
  Receipt Date: 20121031
  Transmission Date: 20140127
  Serious: Yes (Hospitalization)
  Sender: FDA-Public Use
  Company Number: 2012IT0260

PATIENT
  Age: 28 Year
  Sex: Male

DRUGS (3)
  1. KINERET [Suspect]
     Indication: JUVENILE IDIOPATHIC ARTHRITIS
     Route: 058
     Dates: start: 20120529
  2. BACTRIM (TRIMETHOPRIM, SULFAMETOXAZOL) [Concomitant]
  3. DELTACORTENE (PREDNISONE) [Concomitant]

REACTIONS (4)
  - Histiocytosis haematophagic [None]
  - Blood triglycerides increased [None]
  - Blood lactate dehydrogenase increased [None]
  - Disease recurrence [None]
